FAERS Safety Report 13705995 (Version 1)
Quarter: 2017Q2

REPORT INFORMATION
  Report Type: Spontaneous
  Country: GB (occurrence: GB)
  Receive Date: 20170630
  Receipt Date: 20170630
  Transmission Date: 20170830
  Serious: Yes (Hospitalization)
  Sender: FDA-Public Use
  Company Number: GB-TEVA-781020ACC

PATIENT
  Age: 72 Year
  Sex: Female
  Weight: 77.69 kg

DRUGS (8)
  1. SYMBICORT [Concomitant]
     Active Substance: BUDESONIDE\FORMOTEROL FUMARATE DIHYDRATE
     Dosage: 4 DOSAGE FORMS DAILY;
     Route: 055
     Dates: start: 20160905
  2. LANSOPRAZOLE. [Suspect]
     Active Substance: LANSOPRAZOLE
     Indication: TRIGEMINAL NEURALGIA
     Route: 048
  3. HYDROCORTISONE. [Concomitant]
     Active Substance: HYDROCORTISONE
     Dosage: 2 DOSAGE FORMS DAILY;
     Dates: start: 20170413
  4. TERBINAFINE. [Concomitant]
     Active Substance: TERBINAFINE
     Dosage: APPLY TWICE DAILY FOR 2 TO 4 WEEKS
     Dates: start: 20170322
  5. GABAPENTIN. [Concomitant]
     Active Substance: GABAPENTIN
     Dosage: 200 MILLIGRAM DAILY;
     Dates: start: 20170322
  6. SEEBRI BREEZHALER [Concomitant]
     Active Substance: GLYCOPYRROLATE
     Dosage: 44 MICROGRAM DAILY;
     Route: 055
     Dates: start: 20161219
  7. TEGRETOL [Concomitant]
     Active Substance: CARBAMAZEPINE
     Dosage: 800 MILLIGRAM DAILY;
     Dates: start: 20170322
  8. ZEROBASE [Concomitant]
     Dosage: APPLY AS DIRECTED
     Dates: start: 20170413

REACTIONS (1)
  - Hyponatraemia [Recovered/Resolved]
